FAERS Safety Report 8885799 (Version 1)
Quarter: 2012Q4

REPORT INFORMATION
  Report Type: Report from Study
  Country: JP (occurrence: JP)
  Receive Date: 20121102
  Receipt Date: 20121102
  Transmission Date: 20130627
  Serious: Yes (Other)
  Sender: FDA-Public Use
  Company Number: JP-VERTEX PHARMACEUTICAL INC.-AE-2012-011480

PATIENT
  Age: 56 Year
  Sex: Female

DRUGS (12)
  1. VX-950 [Suspect]
     Indication: HEPATITIS C
     Dosage: 2250 mg, qd
     Route: 048
     Dates: start: 20120713, end: 20120715
  2. VX-950 [Suspect]
     Dosage: 750 mg, qd
     Dates: start: 20120716, end: 20120717
  3. RIBAVIRIN [Suspect]
     Indication: HEPATITIS C
     Dosage: 400 mg, qd
     Route: 048
     Dates: start: 20120713, end: 20120717
  4. PEGINTERFERON ALFA-2B [Suspect]
     Indication: HEPATITIS C
     Dosage: 1.43 ?g/kg, qw
     Route: 058
     Dates: start: 20120713, end: 20120717
  5. GLIMEPIRIDE [Concomitant]
     Route: 048
  6. GLIMEPIRIDE [Concomitant]
     Route: 048
  7. SEIBULE [Concomitant]
     Dosage: 150 mg, qd
     Route: 048
  8. SEIBULE [Concomitant]
     Dosage: 50 mg, qd
  9. BLOPRESS [Concomitant]
     Route: 048
  10. ZETIA [Concomitant]
     Route: 048
  11. JANUVIA [Concomitant]
     Route: 048
  12. URSODEOXYCHOLIC ACID [Concomitant]
     Route: 048

REACTIONS (1)
  - Blood creatinine increased [Recovered/Resolved]
